FAERS Safety Report 21478991 (Version 1)
Quarter: 2022Q4

REPORT INFORMATION
  Report Type: Spontaneous
  Country: AT (occurrence: AT)
  Receive Date: 20221019
  Receipt Date: 20221019
  Transmission Date: 20230112
  Serious: Yes (Hospitalization)
  Sender: FDA-Public Use
  Company Number: AT-ROCHE-3121935

PATIENT
  Age: 74 Year
  Sex: Female
  Weight: 53 kg

DRUGS (28)
  1. PALBOCICLIB [Suspect]
     Active Substance: PALBOCICLIB
     Indication: Breast cancer metastatic
     Dosage: 100 MG, (MOST RECENT DOSE ADMINISTERED ON DEC2020)
     Route: 048
     Dates: start: 202011, end: 202012
  2. PALBOCICLIB [Suspect]
     Active Substance: PALBOCICLIB
     Dosage: 100 MG, (MOST RECENT DOSE ADMINISTERED ON DEC2020)
     Route: 048
     Dates: start: 202012
  3. DOCETAXEL [Suspect]
     Active Substance: DOCETAXEL
     Indication: Breast cancer metastatic
     Dosage: 75 MG/M2, EVERY 3 WEEKS, (MOST RECENT DOSE ADMINISTERED ON 13OCT20161 TIMES PER 3 WEEKS)
     Route: 042
     Dates: start: 20160629
  4. DOCETAXEL [Suspect]
     Active Substance: DOCETAXEL
     Dosage: 75 MG/M2, EVERY 3 WEEKS, (MOST RECENT DOSE ADMINISTERED ON 13OCT20161 TIMES PER 3 WEEKS)
     Route: 042
     Dates: start: 20161013
  5. LETROZOLE [Suspect]
     Active Substance: LETROZOLE
     Indication: Breast cancer metastatic
     Dosage: 2.5 MG, 1X/DAY
     Route: 048
     Dates: start: 20161021
  6. LETROZOLE [Suspect]
     Active Substance: LETROZOLE
     Dosage: 2.5 MG, 1X/DAY
     Route: 048
     Dates: start: 20200629
  7. TRASTUZUMAB [Suspect]
     Active Substance: TRASTUZUMAB
     Indication: Breast cancer metastatic
     Dosage: 354 MG, EVERY 3 WEEKS, MOST RECENT DOSE PRIOR TO THE EVENT: 27/FEB/20201 TIMES 3 WEEKS IV DRIP (R2)
     Route: 042
     Dates: start: 20160629, end: 20180621
  8. TRASTUZUMAB [Suspect]
     Active Substance: TRASTUZUMAB
     Dosage: 354 MG, EVERY 3 WEEKS, MOST RECENT DOSE PRIOR TO THE EVENT: 27/FEB/20201 TIMES 3 WEEKS IV DRIP (R2)
     Route: 042
     Dates: start: 20200227
  9. CAPECITABINE [Suspect]
     Active Substance: CAPECITABINE
     Indication: Breast cancer metastatic
     Dosage: 3000 MG, (FREQUENCY: 3 MONTHS), MOST RECENT DOSE ADMINISTERED ON FEB2022
     Route: 048
     Dates: start: 20211025, end: 202201
  10. CAPECITABINE [Suspect]
     Active Substance: CAPECITABINE
     Dosage: 3000 MG, (FREQUENCY: 3 MONTHS), MOST RECENT DOSE ADMINISTERED ON FEB2022
     Route: 048
     Dates: start: 202202
  11. DENOSUMAB [Suspect]
     Active Substance: DENOSUMAB
     Indication: Breast cancer metastatic
     Dosage: 120 MG, MONTHLY, (MOST RECENT DOSE ADMINISTERED ON JAN20211 TIMES PER 4 WEEKS)
     Route: 058
     Dates: start: 20161121
  12. DENOSUMAB [Suspect]
     Active Substance: DENOSUMAB
     Dosage: 120 MG, MONTHLY, (MOST RECENT DOSE ADMINISTERED ON JAN20211 TIMES PER 4 WEEKS)
     Route: 058
     Dates: start: 202101
  13. FULVESTRANT [Suspect]
     Active Substance: FULVESTRANT
     Indication: Breast cancer metastatic
     Dosage: 500 MG, MONTHLY, (MOST RECENT DOSE ADMINISTERED ON OCT20211 TIMES IN 4 WEEKS)
     Route: 030
     Dates: start: 20200716
  14. FULVESTRANT [Suspect]
     Active Substance: FULVESTRANT
     Dosage: 500 MG, MONTHLY, (MOST RECENT DOSE ADMINISTERED ON OCT20211 TIMES IN 4 WEEKS)
     Route: 030
     Dates: start: 202110
  15. PERTUZUMAB [Suspect]
     Active Substance: PERTUZUMAB
     Indication: Breast cancer metastatic
     Dosage: 420 MG, EVERY 3 WEEKS
     Route: 042
     Dates: start: 20160629, end: 20180621
  16. PERTUZUMAB [Suspect]
     Active Substance: PERTUZUMAB
     Dosage: 420 MG, EVERY 3 WEEKS
     Route: 042
     Dates: start: 20200227
  17. RIBOCICLIB [Suspect]
     Active Substance: RIBOCICLIB
     Indication: Breast cancer metastatic
     Dosage: 400 MG, (MOST RECENT DOSE ADMINISTERED ON 18NOV2020)
     Route: 048
     Dates: start: 20200824
  18. RIBOCICLIB [Suspect]
     Active Substance: RIBOCICLIB
     Dosage: 400 MG, (MOST RECENT DOSE ADMINISTERED ON 18NOV2020)
     Route: 048
     Dates: start: 20201118
  19. METHYLPREDNISOLONE ACEPONATE [Concomitant]
     Active Substance: METHYLPREDNISOLONE ACEPONATE
     Indication: Palmar-plantar erythrodysaesthesia syndrome
     Dosage: UNK
     Dates: start: 20201111
  20. AMOXICILLIN\CLAVULANATE POTASSIUM [Concomitant]
     Active Substance: AMOXICILLIN\CLAVULANATE POTASSIUM
     Dosage: UNK
     Dates: start: 20210915
  21. BETAISODONA [Concomitant]
     Active Substance: POVIDONE-IODINE
     Indication: Paronychia
     Dosage: UNK
     Dates: start: 20201111
  22. DIPRODERM [BETAMETHASONE DIPROPIONATE] [Concomitant]
     Dosage: UNK
     Dates: start: 20180621
  23. EUTHYROX [Concomitant]
     Active Substance: LEVOTHYROXINE SODIUM
     Dosage: UNK
     Dates: start: 20210223
  24. HYDROMORPHONE HYDROCHLORIDE [Concomitant]
     Active Substance: HYDROMORPHONE HYDROCHLORIDE
     Indication: Pain
     Dosage: UNK
     Dates: start: 20210915
  25. NEBIVOLOL HYDROCHLORIDE [Concomitant]
     Active Substance: NEBIVOLOL HYDROCHLORIDE
     Dosage: UNK
     Dates: start: 20170115
  26. NOVALGIN (METAMIZOLE SODIUM) [Concomitant]
     Active Substance: METAMIZOLE SODIUM
     Dosage: UNK
     Dates: start: 20210915
  27. PANTOPRAZOLE SODIUM [Concomitant]
     Active Substance: PANTOPRAZOLE SODIUM
     Indication: Gastritis
     Dosage: UNK
     Dates: start: 20211115
  28. TRAMADOL [Concomitant]
     Active Substance: TRAMADOL
     Indication: Contusion
     Dosage: UNK
     Dates: start: 20220615

REACTIONS (1)
  - Contusion [Recovered/Resolved]

NARRATIVE: CASE EVENT DATE: 20220611
